FAERS Safety Report 21605806 (Version 1)
Quarter: 2022Q4

REPORT INFORMATION
  Report Type: Spontaneous
  Country: US (occurrence: US)
  Receive Date: 20221116
  Receipt Date: 20221116
  Transmission Date: 20230113
  Serious: No
  Sender: FDA-Public Use
  Company Number: US-009507513-2211USA001936

PATIENT
  Age: 7 Year
  Sex: Female

DRUGS (3)
  1. TEMODAR [Suspect]
     Active Substance: TEMOZOLOMIDE
     Indication: Neuroblastoma recurrent
     Route: 048
  2. DINUTUXIMAB [Concomitant]
     Active Substance: DINUTUXIMAB
     Indication: Neuroblastoma recurrent
  3. IRINOTECAN [Concomitant]
     Active Substance: IRINOTECAN
     Indication: Neuroblastoma recurrent

REACTIONS (1)
  - Product use in unapproved indication [Unknown]
